FAERS Safety Report 7764757-4 (Version None)
Quarter: 2011Q3

REPORT INFORMATION
  Report Type: 
  Country: None (occurrence: None)
  Receive Date: 20110921
  Receipt Date: 20110921
  Transmission Date: 20111222
  Serious: Yes (Hospitalization, Disabling)
  Sender: FDA-Public Use
  Company Number: None

PATIENT
  Age: 50 Year
  Sex: Female
  Weight: 45.36 kg

DRUGS (3)
  1. CARBAMAZEPINE [Concomitant]
     Indication: COMPLEX PARTIAL SEIZURES
     Dosage: CARBAMAZEPINE
     Route: 048
     Dates: start: 20040701, end: 20110920
  2. CLARITHROMYCIN [Suspect]
     Indication: BRONCHIECTASIS
     Dosage: CLARITHROMYCIN
     Route: 048
     Dates: start: 20110909, end: 20110911
  3. CLARITHROMYCIN [Suspect]
     Indication: CONDITION AGGRAVATED
     Dosage: CLARITHROMYCIN
     Route: 048
     Dates: start: 20110909, end: 20110911

REACTIONS (11)
  - MENTAL STATUS CHANGES [None]
  - DRUG LEVEL INCREASED [None]
  - NAUSEA [None]
  - AGITATION [None]
  - TOXICITY TO VARIOUS AGENTS [None]
  - DRUG INTERACTION [None]
  - NO REACTION ON PREVIOUS EXPOSURE TO DRUG [None]
  - DYSARTHRIA [None]
  - RESTLESSNESS [None]
  - LOBAR PNEUMONIA [None]
  - CONFUSIONAL STATE [None]
